FAERS Safety Report 8366747-X (Version None)
Quarter: 2012Q2

REPORT INFORMATION
  Report Type: 
  Country: None (occurrence: None)
  Receive Date: 20120517
  Receipt Date: 20120505
  Transmission Date: 20120825
  Serious: Yes (Hospitalization)
  Sender: FDA-Public Use
  Company Number: CA-JNJFOC-20120506629

PATIENT
  Sex: Male
  Weight: 80 kg

DRUGS (3)
  1. ANTIBIOTIC UNSPECIFIED [Concomitant]
     Route: 065
  2. CIPROFLOXACIN HCL [Concomitant]
     Route: 065
  3. REMICADE [Suspect]
     Indication: CROHN'S DISEASE
     Route: 042
     Dates: start: 20100810

REACTIONS (2)
  - EXCORIATION [None]
  - CROHN'S DISEASE [None]
